FAERS Safety Report 25529551 (Version 1)
Quarter: 2025Q3

REPORT INFORMATION
  Report Type: Spontaneous
  Country: PR (occurrence: None)
  Receive Date: 20250707
  Receipt Date: 20250707
  Transmission Date: 20251020
  Serious: Yes (Other)
  Sender: FDA-CTU
  Company Number: None

PATIENT
  Age: 53 Year
  Sex: Female
  Weight: 61.2 kg

DRUGS (5)
  1. ZEPBOUND [Suspect]
     Active Substance: TIRZEPATIDE
     Indication: Weight decreased
     Route: 050
     Dates: start: 20250222, end: 20250426
  2. SINGULAIR [Concomitant]
     Active Substance: MONTELUKAST SODIUM
  3. SYNTHROID [Concomitant]
     Active Substance: LEVOTHYROXINE SODIUM
  4. CLARITIN [Concomitant]
     Active Substance: LORATADINE
  5. women vitamins [Concomitant]

REACTIONS (5)
  - Alopecia [None]
  - Alopecia [None]
  - Depression [None]
  - Emotional disorder [None]
  - Quality of life decreased [None]

NARRATIVE: CASE EVENT DATE: 20250222
